FAERS Safety Report 25252305 (Version 1)
Quarter: 2025Q2

REPORT INFORMATION
  Report Type: Spontaneous
  Country: US (occurrence: None)
  Receive Date: 20250429
  Receipt Date: 20250429
  Transmission Date: 20250717
  Serious: No
  Sender: INCYTE
  Company Number: US-INCYTE CORPORATION-2025IN004312

PATIENT
  Age: 87 Year

DRUGS (1)
  1. JAKAFI [Suspect]
     Active Substance: RUXOLITINIB
     Indication: Lymphocytic leukaemia
     Dosage: 10 MILLIGRAM, QD

REACTIONS (2)
  - Product dose omission issue [Unknown]
  - Off label use [Unknown]
